FAERS Safety Report 8322516-8 (Version None)
Quarter: 2012Q2

REPORT INFORMATION
  Report Type: 
  Country: None (occurrence: None)
  Receive Date: 20120430
  Receipt Date: 20100315
  Transmission Date: 20120825
  Serious: No
  Sender: FDA-Public Use
  Company Number: US-TEVA-2010000696

PATIENT
  Sex: Female
  Weight: 68.1 kg

DRUGS (3)
  1. PREMARIN [Concomitant]
  2. NEURONTIN [Concomitant]
  3. NUVIGIL [Suspect]
     Indication: FATIGUE
     Dosage: 150 MILLIGRAM;
     Route: 048
     Dates: start: 20090609, end: 20090611

REACTIONS (6)
  - TREMOR [None]
  - PANIC ATTACK [None]
  - HEADACHE [None]
  - INSOMNIA [None]
  - TACHYCARDIA [None]
  - NAUSEA [None]
